FAERS Safety Report 8146773-6 (Version None)
Quarter: 2012Q1

REPORT INFORMATION
  Report Type: 
  Country: None (occurrence: None)
  Receive Date: 20120217
  Receipt Date: 20111004
  Transmission Date: 20120608
  Serious: No
  Sender: FDA-Public Use
  Company Number: US-ABBOTT-11P-163-0860505-00

PATIENT
  Sex: Male
  Weight: 98.518 kg

DRUGS (3)
  1. NIASPAN [Suspect]
  2. SIMCOR [Suspect]
     Indication: BLOOD CHOLESTEROL INCREASED
     Dosage: 1000/40 MG AT BEDTIME
  3. ACTOS [Concomitant]
     Indication: DIABETES MELLITUS

REACTIONS (1)
  - MUSCLE SPASMS [None]
